FAERS Safety Report 9553366 (Version 1)
Quarter: 2013Q3

REPORT INFORMATION
  Report Type: Spontaneous
  Country: US (occurrence: US)
  Receive Date: 20130925
  Receipt Date: 20130925
  Transmission Date: 20140515
  Serious: No
  Sender: FDA-Public Use
  Company Number: US-ABBVIE-13P-163-1139191-00

PATIENT
  Age: 25 Year
  Sex: Female
  Weight: 69.01 kg

DRUGS (1)
  1. VICODIN HP [Suspect]
     Indication: PAIN
     Dates: start: 20130809

REACTIONS (1)
  - Lymphadenopathy [Recovered/Resolved]
